FAERS Safety Report 7807015-1 (Version None)
Quarter: 2011Q4

REPORT INFORMATION
  Report Type: 
  Country: None (occurrence: None)
  Receive Date: 20111011
  Receipt Date: 20111003
  Transmission Date: 20120403
  Serious: Yes (Other)
  Sender: FDA-Public Use
  Company Number: JP-JNJFOC-20111003186

PATIENT
  Age: 80 Year
  Sex: Female

DRUGS (8)
  1. GALANTAMINE HYDROBROMIDE [Suspect]
     Indication: DEMENTIA ALZHEIMER'S TYPE
     Route: 048
     Dates: start: 20110902, end: 20110929
  2. GALANTAMINE HYDROBROMIDE [Suspect]
     Route: 048
     Dates: start: 20110930, end: 20111001
  3. OLMESARTAN MEDOXOMIL [Concomitant]
     Route: 048
  4. PERINDOPRIL ERBUMINE [Concomitant]
     Route: 048
  5. SCOPOLAMINE [Concomitant]
     Route: 065
  6. ANPLAG [Concomitant]
     Route: 048
  7. ASPIRIN [Concomitant]
     Route: 048
  8. PIRETANIDE [Concomitant]
     Route: 065

REACTIONS (4)
  - TONIC CONVULSION [None]
  - RESPIRATORY ARREST [None]
  - ABDOMINAL PAIN [None]
  - VOMITING [None]
